FAERS Safety Report 8286553-4 (Version None)
Quarter: 2012Q2

REPORT INFORMATION
  Report Type: 
  Country: None (occurrence: None)
  Receive Date: 20120416
  Receipt Date: 20110804
  Transmission Date: 20120825
  Serious: No
  Sender: FDA-Public Use
  Company Number: US-MYLANLABS-2011S1016407

PATIENT
  Age: 69 Year
  Sex: Female
  Weight: 65.77 kg

DRUGS (9)
  1. MIRTAZAPINE [Concomitant]
     Indication: INSOMNIA
  2. HYDROCODONE BITARTRATE [Concomitant]
     Indication: BACK PAIN
     Dosage: 5MG/500MG
  3. QUINAPRIL AND HYDROCHLOROTHIAZIDE [Suspect]
     Route: 048
     Dates: end: 20110502
  4. QUINAPRIL AND HYDROCHLOROTHIAZIDE [Suspect]
     Route: 048
     Dates: start: 20110502, end: 20110527
  5. ESTRADIOL [Concomitant]
     Indication: HORMONE REPLACEMENT THERAPY
     Dates: start: 19890101
  6. LIPITOR [Concomitant]
     Indication: BLOOD CHOLESTEROL INCREASED
  7. QUINAPRIL AND HYDROCHLOROTHIAZIDE [Suspect]
     Indication: BLOOD PRESSURE INCREASED
     Route: 048
     Dates: start: 20110502, end: 20110527
  8. XANAX [Concomitant]
     Indication: ANXIETY
  9. QUINAPRIL AND HYDROCHLOROTHIAZIDE [Suspect]
     Indication: BLOOD PRESSURE INCREASED
     Route: 048
     Dates: end: 20110502

REACTIONS (2)
  - DYSPHAGIA [None]
  - PHARYNGEAL OEDEMA [None]
